FAERS Safety Report 18358476 (Version 3)
Quarter: 2022Q4

REPORT INFORMATION
  Report Type: Spontaneous
  Country: GB (occurrence: GB)
  Receive Date: 20201008
  Receipt Date: 20221117
  Transmission Date: 20230113
  Serious: Yes (Other)
  Sender: FDA-Public Use
  Company Number: None

PATIENT

DRUGS (5)
  1. IBUPROFEN [Suspect]
     Active Substance: IBUPROFEN
     Indication: Product used for unknown indication
     Dosage: 200 MG
     Route: 065
     Dates: start: 20200905
  2. EPINEPHRINE BITARTRATE [Concomitant]
     Active Substance: EPINEPHRINE BITARTRATE
     Indication: Product used for unknown indication
     Dosage: UNK, (AS DIRECTED)
     Route: 065
     Dates: start: 20200731, end: 20200828
  3. FEXOFENADINE [Concomitant]
     Active Substance: FEXOFENADINE HYDROCHLORIDE
     Indication: Product used for unknown indication
     Dosage: 1 DF, QD
     Route: 065
     Dates: start: 20200601
  4. ACETAMINOPHEN [Concomitant]
     Active Substance: ACETAMINOPHEN
     Indication: Product used for unknown indication
     Dosage: 2 DF
     Dates: start: 20200905
  5. HAMAMELIS WATER [Concomitant]
     Indication: Product used for unknown indication
     Dosage: UNK (APPLY AS DIRECTED)
     Dates: start: 20200601

REACTIONS (2)
  - Nasopharyngitis [Recovered/Resolved]
  - Skin texture abnormal [Unknown]

NARRATIVE: CASE EVENT DATE: 20200905
